FAERS Safety Report 7153259-4 (Version None)
Quarter: 2010Q4

REPORT INFORMATION
  Report Type: 
  Country: None (occurrence: None)
  Receive Date: 20101130
  Receipt Date: 20101118
  Transmission Date: 20110411
  Serious: Yes (Hospitalization)
  Sender: FDA-Public Use
  Company Number: 2010US004734

PATIENT
  Sex: Male

DRUGS (3)
  1. PROGRAF [Suspect]
     Indication: PRODUCT USED FOR UNKNOWN INDICATION
     Dosage: 1 MG, BID, ORAL ; 0.5 MG, BID, ORAL ; 1 MG, UID/QD, ORAL
     Route: 048
     Dates: end: 20100101
  2. PROGRAF [Suspect]
     Indication: PRODUCT USED FOR UNKNOWN INDICATION
     Dosage: 1 MG, BID, ORAL ; 0.5 MG, BID, ORAL ; 1 MG, UID/QD, ORAL
     Route: 048
     Dates: start: 20100101, end: 20101101
  3. PROGRAF [Suspect]
     Indication: PRODUCT USED FOR UNKNOWN INDICATION
     Dosage: 1 MG, BID, ORAL ; 0.5 MG, BID, ORAL ; 1 MG, UID/QD, ORAL
     Route: 048
     Dates: start: 20101101

REACTIONS (2)
  - CARDIAC FAILURE CONGESTIVE [None]
  - CARDIAC PACEMAKER INSERTION [None]
